FAERS Safety Report 10471030 (Version 1)
Quarter: 2014Q3

REPORT INFORMATION
  Report Type: Report from Study
  Country: US (occurrence: US)
  Receive Date: 20140923
  Receipt Date: 20140923
  Transmission Date: 20150326
  Serious: No
  Sender: FDA-Public Use
  Company Number: US-ALEXION-A200700303

PATIENT
  Sex: Male

DRUGS (1)
  1. SOLIRIS [Suspect]
     Active Substance: ECULIZUMAB
     Indication: PAROXYSMAL NOCTURNAL HAEMOGLOBINURIA
     Dosage: UNK, Q 14 DAYS
     Route: 042

REACTIONS (7)
  - Extravascular haemolysis [Unknown]
  - Haemoglobin decreased [Unknown]
  - Abasia [Unknown]
  - Skin discolouration [Unknown]
  - Oedema peripheral [Unknown]
  - Pain in extremity [Unknown]
  - Blood lactate dehydrogenase increased [Unknown]
